FAERS Safety Report 6985964-4 (Version None)
Quarter: 2010Q3

REPORT INFORMATION
  Report Type: 
  Country: None (occurrence: None)
  Receive Date: 20100915
  Receipt Date: 20100907
  Transmission Date: 20110219
  Serious: Yes (Death, Other)
  Sender: FDA-Public Use
  Company Number: US-CELGENEUS-163-50794-10091159

PATIENT

DRUGS (5)
  1. VIDAZA [Suspect]
     Route: 051
  2. BORTEZOMIB [Suspect]
     Route: 051
  3. BORTEZOMIB [Suspect]
     Route: 051
  4. BORTEZOMIB [Suspect]
     Route: 051
  5. BORTEZOMIB [Suspect]
     Route: 051

REACTIONS (7)
  - DISEASE PROGRESSION [None]
  - FATIGUE [None]
  - FEBRILE NEUTROPENIA [None]
  - INFECTION [None]
  - NEUROPATHY PERIPHERAL [None]
  - PNEUMONIA [None]
  - SEPSIS [None]
